FAERS Safety Report 25415318 (Version 1)
Quarter: 2025Q2

REPORT INFORMATION
  Report Type: Spontaneous
  Country: DE (occurrence: DE)
  Receive Date: 20250610
  Receipt Date: 20250610
  Transmission Date: 20250717
  Serious: Yes (Hospitalization, Other)
  Sender: CELLTRION
  Company Number: DE-CELLTRION INC.-2024DE013622

PATIENT

DRUGS (12)
  1. YUFLYMA [Suspect]
     Active Substance: ADALIMUMAB-AATY
     Indication: Psoriatic arthropathy
     Dosage: 40 MG, EVERY 2 WEEKS
     Route: 065
     Dates: start: 20230206, end: 20230822
  2. IBUPROFEN [Concomitant]
     Active Substance: IBUPROFEN
     Dates: start: 20200121
  3. IBUPROFEN [Concomitant]
     Active Substance: IBUPROFEN
     Dates: start: 20200121
  4. COSENTYX [Concomitant]
     Active Substance: SECUKINUMAB
     Dates: start: 20210202
  5. COSENTYX [Concomitant]
     Active Substance: SECUKINUMAB
     Dates: start: 20210914, end: 20230109
  6. COSENTYX [Concomitant]
     Active Substance: SECUKINUMAB
     Dates: start: 20230822
  7. COSENTYX [Concomitant]
     Active Substance: SECUKINUMAB
     Dosage: 300MG, EVERY 4 WEEKS
     Dates: start: 20230822
  8. CELECOXIB [Concomitant]
     Active Substance: CELECOXIB
  9. PANTOZOL [Concomitant]
     Active Substance: PANTOPRAZOLE SODIUM
  10. SERTRALINE HYDROCHLORIDE [Concomitant]
     Active Substance: SERTRALINE HYDROCHLORIDE
  11. CANDESARTAN CILEXETIL [Concomitant]
     Active Substance: CANDESARTAN CILEXETIL
  12. CARVEDILOL [Concomitant]
     Active Substance: CARVEDILOL

REACTIONS (4)
  - Psoriatic arthropathy [Recovered/Resolved]
  - Episcleritis [Unknown]
  - Dermatitis psoriasiform [Unknown]
  - Drug specific antibody present [Recovered/Resolved]

NARRATIVE: CASE EVENT DATE: 20230515
